FAERS Safety Report 10020019 (Version 2)
Quarter: 2014Q2

REPORT INFORMATION
  Report Type: Spontaneous
  Country: DE (occurrence: TR)
  Receive Date: 20140318
  Receipt Date: 20140509
  Transmission Date: 20141212
  Serious: No
  Sender: FDA-Public Use
  Company Number: DE-ACTELION-A-US2014-96269

PATIENT
  Age: 42 Year
  Sex: Female
  Weight: 77 kg

DRUGS (6)
  1. VENTAVIS BAYER SCHERING [Suspect]
     Indication: PULMONARY HYPERTENSION
     Dosage: UNK, 9X1
     Route: 055
     Dates: start: 2013
  2. VOLIBRIS [Suspect]
     Indication: PULMONARY HYPERTENSION
     Route: 065
  3. TRENTAL [Concomitant]
  4. DIGOXIN [Concomitant]
  5. ALDACTONE [Concomitant]
  6. DILTIAZEM [Concomitant]

REACTIONS (3)
  - Oedema peripheral [Not Recovered/Not Resolved]
  - Abdominal distension [Not Recovered/Not Resolved]
  - Dry throat [Not Recovered/Not Resolved]
